FAERS Safety Report 24299839 (Version 1)
Quarter: 2024Q3

REPORT INFORMATION
  Report Type: Spontaneous
  Country: IT (occurrence: IT)
  Receive Date: 20240909
  Receipt Date: 20240909
  Transmission Date: 20241016
  Serious: Yes (Death, Other)
  Sender: MYLAN
  Company Number: IT-UCBSA-2024043781

PATIENT
  Age: 13 Year
  Sex: Female

DRUGS (1)
  1. LEVETIRACETAM [Suspect]
     Active Substance: LEVETIRACETAM
     Indication: Partial seizures
     Dosage: UNK
     Route: 065

REACTIONS (7)
  - Pulmonary congestion [Fatal]
  - Cardiac hypertrophy [Fatal]
  - Sudden unexplained death in epilepsy [Fatal]
  - Brain death [Fatal]
  - Pulmonary oedema [Fatal]
  - Cardiac arrest [Fatal]
  - Acidosis [Fatal]
